FAERS Safety Report 13487766 (Version 1)
Quarter: 2017Q2

REPORT INFORMATION
  Report Type: Spontaneous
  Country: US (occurrence: US)
  Receive Date: 20170426
  Receipt Date: 20170426
  Transmission Date: 20170830
  Serious: No
  Sender: FDA-Public Use
  Company Number: US-ALKERMES INC.-ALK-2016-001010

PATIENT
  Age: 26 Year
  Sex: Male

DRUGS (1)
  1. VIVITROL [Suspect]
     Active Substance: NALTREXONE
     Indication: DRUG USE DISORDER
     Dosage: 380 MG, QMO
     Route: 058
     Dates: start: 20160128

REACTIONS (3)
  - Incorrect route of drug administration [Unknown]
  - Injection site haematoma [Unknown]
  - Injection site reaction [Unknown]

NARRATIVE: CASE EVENT DATE: 201603
